FAERS Safety Report 7956725-4 (Version None)
Quarter: 2011Q4

REPORT INFORMATION
  Report Type: 
  Country: None (occurrence: None)
  Receive Date: 20111205
  Receipt Date: 20111130
  Transmission Date: 20120403
  Serious: Yes (Other)
  Sender: FDA-Public Use
  Company Number: US-PFIZER INC-2011293231

PATIENT
  Sex: Male
  Weight: 70.295 kg

DRUGS (2)
  1. DICLOFENAC [Concomitant]
     Indication: ARTHRALGIA
     Dosage: 75 MG, DAILY
  2. CELEBREX [Suspect]
     Indication: ARTHRALGIA
     Dosage: 20 MG, 2X/DAY
     Dates: start: 20040101

REACTIONS (1)
  - MYOCARDIAL INFARCTION [None]
